FAERS Safety Report 7973382-1 (Version None)
Quarter: 2011Q4

REPORT INFORMATION
  Report Type: 
  Country: None (occurrence: None)
  Receive Date: 20111213
  Receipt Date: 20111206
  Transmission Date: 20120403
  Serious: Yes (Other)
  Sender: FDA-Public Use
  Company Number: FR-TEVA-313166ISR

PATIENT
  Age: 79 Year
  Sex: Male

DRUGS (2)
  1. MEMANTINE [Suspect]
  2. LANSOPRAZOLE [Suspect]

REACTIONS (1)
  - PHYSICAL ASSAULT [None]
